FAERS Safety Report 7595643-0 (Version None)
Quarter: 2011Q3

REPORT INFORMATION
  Report Type: 
  Country: None (occurrence: None)
  Receive Date: 20110707
  Receipt Date: 20110627
  Transmission Date: 20111222
  Serious: Yes (Hospitalization, Other)
  Sender: FDA-Public Use
  Company Number: PHHY2011PL56973

PATIENT
  Age: 88 Year
  Sex: Female
  Weight: 54 kg

DRUGS (5)
  1. KETOPROFEN [Suspect]
     Indication: PAIN
     Dosage: 1 DF, UNK
     Route: 048
     Dates: start: 20110530, end: 20110601
  2. ACETAMINOPHEN AND TRAMADOL HCL [Suspect]
     Indication: PAIN
     Dosage: 1 DF, UNK
     Route: 048
     Dates: start: 20110530, end: 20110601
  3. CLEMASTINE FUMARATE [Concomitant]
     Dosage: 0.4 ML, UNK
     Route: 058
     Dates: start: 20110530
  4. NOOTROPIL [Concomitant]
     Dosage: 2.4 G, UNK
     Route: 048
     Dates: start: 20110530
  5. VIVACOR [Concomitant]
     Route: 048
     Dates: start: 20110530

REACTIONS (2)
  - ILLOGICAL THINKING [None]
  - BLINDNESS [None]
